FAERS Safety Report 12647078 (Version 1)
Quarter: 2016Q3

REPORT INFORMATION
  Report Type: Spontaneous
  Country: US (occurrence: None)
  Receive Date: 20160811
  Receipt Date: 20160811
  Transmission Date: 20161109
  Serious: No
  Sender: FDA-Public Use
  Company Number: None

PATIENT
  Age: 45 Year
  Weight: 50.8 kg

DRUGS (5)
  1. TIROSINT [Suspect]
     Active Substance: LEVOTHYROXINE SODIUM
     Indication: HYPOTHYROIDISM
     Dosage: 1 CAPSULE(S) IN THE MORNING TAKEN MOUTH
     Route: 048
     Dates: start: 20160807, end: 20160810
  2. LEVOTHYROXINE. [Concomitant]
     Active Substance: LEVOTHYROXINE
  3. LEXAPRO [Concomitant]
     Active Substance: ESCITALOPRAM OXALATE
  4. XANAX [Concomitant]
     Active Substance: ALPRAZOLAM
  5. ZYRTEC [Concomitant]
     Active Substance: CETIRIZINE HYDROCHLORIDE

REACTIONS (7)
  - Headache [None]
  - Noninfective encephalitis [None]
  - Tremor [None]
  - Visual impairment [None]
  - Inflammation [None]
  - Pain [None]
  - Neuralgia [None]

NARRATIVE: CASE EVENT DATE: 20160810
